FAERS Safety Report 12492349 (Version 2)
Quarter: 2016Q3

REPORT INFORMATION
  Report Type: Report from Study
  Country: US (occurrence: US)
  Receive Date: 20160623
  Receipt Date: 20160802
  Transmission Date: 20161109
  Serious: Yes (Disabling, Other)
  Sender: FDA-Public Use
  Company Number: US-EMD SERONO-E2B_80040230

PATIENT
  Sex: Female

DRUGS (1)
  1. REBIF [Suspect]
     Active Substance: INTERFERON BETA-1A
     Indication: MULTIPLE SCLEROSIS
     Route: 058
     Dates: start: 20160331, end: 20160520

REACTIONS (4)
  - Abnormal behaviour [Recovering/Resolving]
  - Central nervous system lesion [Not Recovered/Not Resolved]
  - Mood altered [Recovering/Resolving]
  - Suicidal ideation [Recovering/Resolving]
